FAERS Safety Report 23163578 (Version 1)
Quarter: 2023Q4

REPORT INFORMATION
  Report Type: Report from Study
  Country: US (occurrence: US)
  Receive Date: 20231109
  Receipt Date: 20231109
  Transmission Date: 20240110
  Serious: Yes (Hospitalization, Other)
  Sender: FDA-Public Use
  Company Number: US-Accord-388795

PATIENT
  Age: 39 Year
  Sex: Female

DRUGS (1)
  1. CLOZAPINE [Suspect]
     Active Substance: CLOZAPINE
     Indication: Product used for unknown indication
     Dosage: 200 MG IN THE MORNING AND 400 MG AT NIGHT
     Route: 048

REACTIONS (3)
  - Neutrophilia [Unknown]
  - Fall [Unknown]
  - COVID-19 [Unknown]

NARRATIVE: CASE EVENT DATE: 20231018
